FAERS Safety Report 23129231 (Version 4)
Quarter: 2023Q4

REPORT INFORMATION
  Report Type: Other
  Country: GB (occurrence: GB)
  Receive Date: 20231031
  Receipt Date: 20231213
  Transmission Date: 20240110
  Serious: Yes (Other)
  Sender: FDA-Public Use
  Company Number: GB-MACLEODS PHARMA EU LTD-MAC2023044011

PATIENT

DRUGS (4)
  1. TENOFOVIR [Suspect]
     Active Substance: TENOFOVIR
     Indication: HIV infection
     Dosage: 1 DOSAGE FORM, QD (TAB/CAPS) 1 COURSE PRIOR TO CONCEPTION AT FIRST TRIMESTER WAS ONGOING AT THE TIME
     Route: 048
     Dates: start: 20160823
  2. LOPINAVIR\RITONAVIR [Suspect]
     Active Substance: LOPINAVIR\RITONAVIR
     Indication: HIV infection
     Dosage: 4 DOSAGE FORM, QD  (TAB/CAPS), (1 COURSE PRIOR TO CONCEPTION AT FIRST TRIMESTER WAS ONGOING AT THE T
     Route: 048
     Dates: start: 20160823
  3. ISENTRESS [Suspect]
     Active Substance: RALTEGRAVIR POTASSIUM
     Indication: HIV infection
     Dosage: 800 MILLIGRAM, QD 1 COURSE PRIOR TO CONCEPTION AT FIRST TRIMESTER WAS ONGOING AT THE TIME OF DELIVER
     Route: 048
     Dates: start: 20160823
  4. SELZENTRY [Suspect]
     Active Substance: MARAVIROC
     Indication: HIV infection
     Dosage: 300 MILLIGRAM, QD (1 COURSE PRIOR TO CONCEPTION AT FIRST TRIMESTER)
     Route: 048
     Dates: start: 20160823

REACTIONS (2)
  - Abortion spontaneous [Unknown]
  - Maternal exposure during pregnancy [Recovered/Resolved]
